FAERS Safety Report 25355355 (Version 1)
Quarter: 2025Q2

REPORT INFORMATION
  Report Type: Spontaneous
  Country: JP (occurrence: JP)
  Receive Date: 20250524
  Receipt Date: 20250524
  Transmission Date: 20250717
  Serious: Yes (Other)
  Sender: MERCK SHARP & DOHME LLC
  Company Number: JP-009507513-2287979

PATIENT
  Age: 78 Year
  Sex: Male
  Weight: 63.7 kg

DRUGS (15)
  1. PEMBROLIZUMAB [Suspect]
     Active Substance: PEMBROLIZUMAB
     Indication: Lung neoplasm malignant
  2. PEMBROLIZUMAB [Suspect]
     Active Substance: PEMBROLIZUMAB
     Indication: Lung neoplasm malignant
  3. PLAVIX [Concomitant]
     Active Substance: CLOPIDOGREL BISULFATE
  4. ROSUVASTATIN [Concomitant]
     Active Substance: ROSUVASTATIN
  5. ISOSORBIDE MONONITRATE [Concomitant]
     Active Substance: ISOSORBIDE MONONITRATE
  6. VONOPRAZAN FUMARATE [Concomitant]
     Active Substance: VONOPRAZAN FUMARATE
  7. BILASTINE [Concomitant]
     Active Substance: BILASTINE
  8. FLUNITRAZEPAM [Concomitant]
     Active Substance: FLUNITRAZEPAM
  9. CARBOPLATIN [Suspect]
     Active Substance: CARBOPLATIN
     Indication: Lung neoplasm malignant
  10. CARBOPLATIN [Suspect]
     Active Substance: CARBOPLATIN
     Indication: Lung neoplasm malignant
  11. PEMETREXED DISODIUM [Suspect]
     Active Substance: PEMETREXED DISODIUM
     Indication: Lung neoplasm malignant
  12. PEMETREXED DISODIUM [Suspect]
     Active Substance: PEMETREXED DISODIUM
     Indication: Lung neoplasm malignant
  13. CELECOXIB [Concomitant]
     Active Substance: CELECOXIB
  14. TAMSULOSIN [Concomitant]
     Active Substance: TAMSULOSIN
  15. REBAMIPIDE [Concomitant]
     Active Substance: REBAMIPIDE

REACTIONS (3)
  - Immune-mediated hepatic disorder [Unknown]
  - Malignant neoplasm progression [Unknown]
  - Immune-mediated hepatitis [Unknown]
